FAERS Safety Report 14167035 (Version 2)
Quarter: 2017Q4

REPORT INFORMATION
  Report Type: Spontaneous
  Country: US (occurrence: US)
  Receive Date: 20171107
  Receipt Date: 20171115
  Transmission Date: 20180321
  Serious: No
  Sender: FDA-Public Use
  Company Number: US-BAYER-2017-214062

PATIENT
  Age: 17 Year
  Sex: Female

DRUGS (1)
  1. GADAVIST [Suspect]
     Active Substance: GADOBUTROL
     Indication: NUCLEAR MAGNETIC RESONANCE IMAGING
     Dosage: 5 ML, ONCE
     Route: 042

REACTIONS (6)
  - Erythema [None]
  - Ear pain [None]
  - Pruritus [None]
  - Hot flush [None]
  - Dyspnoea [None]
  - Abdominal pain [None]

NARRATIVE: CASE EVENT DATE: 20171102
